FAERS Safety Report 10949021 (Version 1)
Quarter: 2015Q1

REPORT INFORMATION
  Report Type: Spontaneous
  Country: US (occurrence: None)
  Receive Date: 20150323
  Receipt Date: 20150323
  Transmission Date: 20150721
  Serious: No
  Sender: FDA-Public Use
  Company Number: None

PATIENT
  Age: 62 Year
  Sex: Male
  Weight: 106.6 kg

DRUGS (10)
  1. AMIODORONE [Concomitant]
     Active Substance: AMIODARONE
  2. COUMADIN [Concomitant]
     Active Substance: WARFARIN SODIUM
  3. VITAMIN E [Concomitant]
     Active Substance: .ALPHA.-TOCOPHEROL
  4. ASPIRIN. [Concomitant]
     Active Substance: ASPIRIN
  5. CARVEDILOL. [Suspect]
     Active Substance: CARVEDILOL
     Indication: ATRIAL FIBRILLATION
     Dosage: 2 PILLS, TWICE DAILY, ORAL
     Route: 048
     Dates: start: 20150315, end: 20150317
  6. COQ 10 [Concomitant]
     Active Substance: UBIDECARENONE
  7. NIACIN. [Concomitant]
     Active Substance: NIACIN
  8. VITAMIN D3 [Concomitant]
     Active Substance: CHOLECALCIFEROL
  9. DIGOXIN. [Concomitant]
     Active Substance: DIGOXIN
  10. FISH OIL [Concomitant]
     Active Substance: FISH OIL

REACTIONS (3)
  - Rash erythematous [None]
  - Eye inflammation [None]
  - Blister [None]

NARRATIVE: CASE EVENT DATE: 20150317
